FAERS Safety Report 11054525 (Version 1)
Quarter: 2015Q2

REPORT INFORMATION
  Report Type: Spontaneous
  Country: AT (occurrence: None)
  Receive Date: 20150420
  Receipt Date: 20150420
  Transmission Date: 20150821
  Serious: Yes (Death, Other)
  Sender: FDA-Public Use
  Company Number: 2015JUB00101

PATIENT
  Age: 51 Year
  Sex: Female

DRUGS (4)
  1. FOLIC ACID (FOLIC ACID) [Suspect]
     Active Substance: FOLIC ACID
     Indication: PROPHYLAXIS
  2. FOLIC ACID (FOLIC ACID) [Suspect]
     Active Substance: FOLIC ACID
     Indication: CHEMOTHERAPY
  3. FOLIC ACID (FOLIC ACID) [Suspect]
     Active Substance: FOLIC ACID
     Indication: ADVERSE DRUG REACTION
  4. CAPECITABINE. [Suspect]
     Active Substance: CAPECITABINE
     Indication: CHEMOTHERAPY

REACTIONS (8)
  - Vomiting [None]
  - Fear [None]
  - Drug interaction [None]
  - Septic shock [None]
  - Bone marrow failure [None]
  - Self-medication [None]
  - Diarrhoea [None]
  - Palmar-plantar erythrodysaesthesia syndrome [None]
